FAERS Safety Report 6340690-X (Version None)
Quarter: 2009Q3

REPORT INFORMATION
  Report Type: 
  Country: None (occurrence: None)
  Receive Date: 20090902
  Receipt Date: 20090902
  Transmission Date: 20100115
  Serious: Yes (Other)
  Sender: FDA-Public Use
  Company Number: None

PATIENT
  Age: 69 Year
  Sex: Male
  Weight: 79.3795 kg

DRUGS (1)
  1. KAPIDEX [Suspect]
     Indication: BARRETT'S OESOPHAGUS
     Dosage: ONE DAILY PO
     Route: 048
     Dates: start: 20090510, end: 20090724

REACTIONS (1)
  - SKIN LESION [None]
